FAERS Safety Report 4739783-X (Version None)
Quarter: 2005Q3

REPORT INFORMATION
  Report Type: 
  Country: None (occurrence: None)
  Receive Date: 20050810
  Receipt Date: 20050512
  Transmission Date: 20060218
  Serious: No
  Sender: FDA-Public Use
  Company Number: US-GLAXOSMITHKLINE-A0558377A

PATIENT
  Age: 48 Year
  Sex: Female

DRUGS (3)
  1. PAXIL [Suspect]
     Dosage: 30MG TWICE PER DAY
     Route: 048
     Dates: start: 20050509
  2. TENORMIN [Concomitant]
  3. DIAZIDE [Concomitant]

REACTIONS (1)
  - DRUG INEFFECTIVE [None]
